FAERS Safety Report 6093809-2 (Version None)
Quarter: 2009Q1

REPORT INFORMATION
  Report Type: 
  Country: None (occurrence: None)
  Receive Date: 20090226
  Receipt Date: 20090217
  Transmission Date: 20090719
  Serious: Yes (Other)
  Sender: FDA-Public Use
  Company Number: EG-ELI_LILLY_AND_COMPANY-EG200901003088

PATIENT

DRUGS (5)
  1. HUMALOG MIX 75/25 [Suspect]
     Dosage: 35 IU, EACH MORNING
     Route: 064
     Dates: start: 20081111
  2. HUMALOG MIX 75/25 [Suspect]
     Dosage: 25 IU, EACH EVENING
     Route: 064
  3. HUMULIN 70/30 [Suspect]
     Dosage: 35 IU, EACH MORNING
     Route: 064
     Dates: end: 20081001
  4. HUMULIN 70/30 [Suspect]
     Dosage: 25 IU, EACH EVENING
     Route: 064
  5. VITAMINS WITH MINERALS [Concomitant]
     Dosage: UNK, UNKNOWN
     Route: 064

REACTIONS (3)
  - CAESAREAN SECTION [None]
  - DRUG EXPOSURE DURING PREGNANCY [None]
  - PREMATURE BABY [None]
